FAERS Safety Report 5425464-6 (Version None)
Quarter: 2007Q3

REPORT INFORMATION
  Report Type: 
  Country: None (occurrence: None)
  Receive Date: 20070824
  Receipt Date: 20070816
  Transmission Date: 20080115
  Serious: Yes (Hospitalization)
  Sender: FDA-Public Use
  Company Number: JP-AMGEN-US209837

PATIENT
  Sex: Female
  Weight: 38 kg

DRUGS (12)
  1. ENBREL [Suspect]
     Indication: RHEUMATOID ARTHRITIS
     Route: 058
     Dates: start: 20070110
  2. NAUZELIN [Suspect]
     Route: 048
  3. FLUCAM [Concomitant]
     Route: 048
  4. CINAL [Concomitant]
     Route: 048
  5. MYONAL [Concomitant]
     Route: 048
  6. PREDNISOLONE [Concomitant]
     Indication: RHEUMATOID ARTHRITIS
     Dosage: NOT SPECIFIED
     Route: 048
  7. ISONIAZID [Concomitant]
     Route: 048
  8. BUFFERIN [Concomitant]
     Route: 048
  9. AZATHIOPRINE [Concomitant]
     Dosage: NOT SPECIFIED
     Route: 048
  10. ACTARIT [Concomitant]
     Dosage: NOT SPECIFIED
     Route: 048
  11. FAMOTIDINE [Concomitant]
     Route: 048
  12. RABEPRAZOLE SODIUM [Concomitant]
     Route: 048

REACTIONS (1)
  - PARKINSONISM [None]
